FAERS Safety Report 8892998 (Version 1)
Quarter: 2012Q4

REPORT INFORMATION
  Report Type: 
  Country: US (occurrence: US)
  Receive Date: 20121107
  Receipt Date: 20121107
  Transmission Date: 20130627
  Serious: No
  Sender: FDA-Public Use
  Company Number: US-AMGEN-USASP2011054286

PATIENT
  Age: 61 Year
  Sex: Female

DRUGS (7)
  1. ENBREL [Suspect]
     Indication: PRODUCT USED FOR UNKNOWN INDICATION
     Dosage: 50 mg, qwk
     Route: 058
  2. LEXAPRO [Concomitant]
     Dosage: 20 mg, UNK
  3. CALCIUM [Concomitant]
     Dosage: 600 UNK, UNK
  4. MINERALS NOS W/VITAMINS NOS [Concomitant]
  5. FISH OIL [Concomitant]
  6. VITAMIN B1 [Concomitant]
     Dosage: 100 mg, UNK
  7. FOLIC ACID [Concomitant]
     Dosage: 5 mg, UNK

REACTIONS (1)
  - Injection site bruising [Unknown]
